FAERS Safety Report 6369753-X (Version None)
Quarter: 2009Q3

REPORT INFORMATION
  Report Type: 
  Country: None (occurrence: None)
  Receive Date: 20090923
  Receipt Date: 20090914
  Transmission Date: 20100115
  Serious: Yes (Hospitalization)
  Sender: FDA-Public Use
  Company Number: CA-JNJFOC-20090904577

PATIENT
  Sex: Male
  Weight: 80.6 kg

DRUGS (2)
  1. REMICADE [Suspect]
     Indication: CROHN'S DISEASE
     Dosage: TOTAL OF 10 DOSES RECEIVED
     Route: 042
     Dates: start: 20080807
  2. TYLENOL (CAPLET) [Concomitant]
     Indication: PREMEDICATION

REACTIONS (2)
  - NASOPHARYNGITIS [None]
  - PERICARDITIS [None]
